FAERS Safety Report 18033972 (Version 1)
Quarter: 2020Q3

REPORT INFORMATION
  Report Type: Spontaneous
  Country: JP (occurrence: JP)
  Receive Date: 20200716
  Receipt Date: 20200716
  Transmission Date: 20201103
  Serious: Yes (Other)
  Sender: FDA-Public Use
  Company Number: JP-OTSUKA-2020_015134

PATIENT
  Sex: Male

DRUGS (1)
  1. ABILIFY MAINTENA [Suspect]
     Active Substance: ARIPIPRAZOLE
     Indication: PRODUCT USED FOR UNKNOWN INDICATION
     Dosage: UNK
     Route: 065
     Dates: end: 2020

REACTIONS (14)
  - Cerebral disorder [Unknown]
  - Crime [Unknown]
  - Sexual dysfunction [Unknown]
  - Somnolence [Unknown]
  - Skin discolouration [Unknown]
  - Pain in extremity [Unknown]
  - Injection site pain [Unknown]
  - Prostatic pain [Unknown]
  - Hepatic function abnormal [Unknown]
  - Bedridden [Unknown]
  - Parkinson^s disease [Unknown]
  - Dizziness [Unknown]
  - Visual acuity reduced [Unknown]
  - Dyspnoea [Unknown]
